FAERS Safety Report 20089434 (Version 1)
Quarter: 2021Q4

REPORT INFORMATION
  Report Type: Spontaneous
  Country: US (occurrence: US)
  Receive Date: 20211119
  Receipt Date: 20211119
  Transmission Date: 20220303
  Serious: Yes (Hospitalization)
  Sender: FDA-Public Use
  Company Number: US-GW PHARMA-202111USGW05579

PATIENT

DRUGS (2)
  1. EPIDIOLEX [Suspect]
     Active Substance: CANNABIDIOL
     Indication: Lennox-Gastaut syndrome
     Dosage: 620 MILLIGRAM, BID, LATER REDUCED TO 300 MILLIGRAM
     Route: 048
     Dates: start: 20190522
  2. EPIDIOLEX [Suspect]
     Active Substance: CANNABIDIOL
     Dosage: ADDITIONAL BATCH NUMBER
     Route: 048

REACTIONS (3)
  - Weight decreased [Unknown]
  - Hospitalisation [Unknown]
  - Product dose omission issue [Unknown]
